FAERS Safety Report 8384499-4 (Version None)
Quarter: 2012Q2

REPORT INFORMATION
  Report Type: 
  Country: None (occurrence: None)
  Receive Date: 20120524
  Receipt Date: 20120514
  Transmission Date: 20120825
  Serious: Yes (Hospitalization, Other)
  Sender: FDA-Public Use
  Company Number: DE-ELI_LILLY_AND_COMPANY-DE201205004964

PATIENT
  Age: 71 Year
  Sex: Male

DRUGS (17)
  1. SIMVASTATIN [Concomitant]
     Dosage: 10 MG, UNK
  2. LINEZOLID [Concomitant]
     Dosage: 600 MG, UNK
  3. DIGITOXIN TAB [Concomitant]
     Dosage: 0.1 MG, UNK
  4. TORSEMIDE [Concomitant]
     Dosage: 20 MG, UNK
  5. TRAMADOL HYDROCHLORIDE [Concomitant]
     Dosage: 100 MG, UNK
  6. AMPHOTERICIN B [Concomitant]
     Dosage: UNK, QID
  7. VITAMIN B-12 [Concomitant]
     Dosage: 1000 DF, MONTHLY (1/M)
     Route: 058
  8. METAMIZOL [Concomitant]
     Dosage: 40 GTT, UNK
  9. MARCUMAR [Concomitant]
     Indication: DEEP VEIN THROMBOSIS
     Dosage: UNK
  10. ALIMTA [Suspect]
     Indication: LUNG ADENOCARCINOMA STAGE IV
     Dosage: 500 MG/M2, UNK
     Route: 042
  11. CARBOPLATIN [Concomitant]
  12. FOLSAURE [Concomitant]
     Dosage: 0.4 MG, UNK
  13. CISPLATIN [Concomitant]
  14. AMLODIPINE BESYLATE [Concomitant]
     Dosage: 10 MG, UNK
  15. HYDROCHLOROTHIAZIDE [Concomitant]
     Dosage: 12.5 MG, UNK
  16. PANTOPRAZOLE [Concomitant]
     Dosage: 40 MG, UNK
  17. GLANDOMED [Concomitant]
     Dosage: UNK, QID

REACTIONS (6)
  - METASTASES TO LYMPH NODES [None]
  - ANAEMIA [None]
  - UPPER GASTROINTESTINAL HAEMORRHAGE [None]
  - PLEURAL EFFUSION [None]
  - ERYSIPELAS [None]
  - GASTRIC ULCER [None]
